FAERS Safety Report 20706984 (Version 3)
Quarter: 2022Q2

REPORT INFORMATION
  Report Type: Spontaneous
  Country: US (occurrence: US)
  Receive Date: 20220413
  Receipt Date: 20220615
  Transmission Date: 20220720
  Serious: No
  Sender: FDA-Public Use
  Company Number: US-PFIZER INC-2021670933

PATIENT
  Age: 54 Year
  Sex: Female

DRUGS (1)
  1. COLESTIPOL HYDROCHLORIDE [Suspect]
     Active Substance: COLESTIPOL HYDROCHLORIDE
     Indication: Blood cholesterol abnormal
     Dosage: 1 TABLET BY MOUTH ONCE IN A DAY
     Route: 048

REACTIONS (4)
  - Dysphagia [Unknown]
  - Product physical issue [Unknown]
  - Poor quality product administered [Unknown]
  - Off label use [Unknown]

NARRATIVE: CASE EVENT DATE: 20210501
